FAERS Safety Report 20363813 (Version 1)
Quarter: 2022Q1

REPORT INFORMATION
  Report Type: Spontaneous
  Country: AU (occurrence: AU)
  Receive Date: 20220121
  Receipt Date: 20220121
  Transmission Date: 20220423
  Serious: Yes (Hospitalization)
  Sender: FDA-Public Use
  Company Number: AU-CELGENE-AUS-20220104570

PATIENT
  Sex: Male

DRUGS (2)
  1. REVLIMID [Suspect]
     Active Substance: LENALIDOMIDE
     Indication: Plasma cell myeloma
     Dosage: 10 MILLIGRAM
     Route: 048
     Dates: start: 20211115
  2. REVLIMID [Suspect]
     Active Substance: LENALIDOMIDE
     Dosage: THREE TIMES WEEKLY, TITRATING UP TO 1 DAILY D1-21
     Route: 048
     Dates: start: 20220118

REACTIONS (1)
  - Gastrointestinal disorder [Unknown]
